FAERS Safety Report 8031897-4 (Version None)
Quarter: 2012Q1

REPORT INFORMATION
  Report Type: 
  Country: None (occurrence: None)
  Receive Date: 20120109
  Receipt Date: 20111228
  Transmission Date: 20120608
  Serious: Yes (Other)
  Sender: FDA-Public Use
  Company Number: US-WATSON-2011-22719

PATIENT
  Age: 62 Year
  Sex: Female

DRUGS (2)
  1. TAMOXIFEN CITRATE [Suspect]
     Indication: OSTEOPENIA
     Dosage: UNK
  2. RISEDRONATE SODIUM [Suspect]
     Indication: OSTEOPENIA
     Dosage: UNK

REACTIONS (1)
  - FEMUR FRACTURE [None]
